FAERS Safety Report 6571334-X (Version None)
Quarter: 2010Q1

REPORT INFORMATION
  Report Type: 
  Country: None (occurrence: None)
  Receive Date: 20100205
  Receipt Date: 20100129
  Transmission Date: 20100710
  Serious: Yes (Other)
  Sender: FDA-Public Use
  Company Number: US-BIOGENIDEC-2009BI032263

PATIENT
  Age: 52 Year
  Sex: Female
  Weight: 106 kg

DRUGS (6)
  1. TYSABRI [Suspect]
     Indication: MULTIPLE SCLEROSIS
     Route: 042
     Dates: start: 20090415, end: 20090901
  2. TYSABRI [Suspect]
     Route: 042
     Dates: start: 20090415, end: 20090901
  3. TYSABRI [Suspect]
     Route: 042
     Dates: start: 20090415, end: 20090901
  4. TYSABRI [Suspect]
     Route: 042
     Dates: start: 20090415, end: 20090901
  5. TYSABRI [Suspect]
     Route: 042
     Dates: start: 20090415, end: 20090901
  6. TYSABRI [Suspect]
     Route: 042
     Dates: start: 20060831, end: 20080814

REACTIONS (4)
  - MALAISE [None]
  - PAIN [None]
  - RENAL CELL CARCINOMA [None]
  - RENAL DISORDER [None]
